FAERS Safety Report 7891991-5 (Version None)
Quarter: 2011Q4

REPORT INFORMATION
  Report Type: 
  Country: None (occurrence: None)
  Receive Date: 20111103
  Receipt Date: 20110812
  Transmission Date: 20120403
  Serious: No
  Sender: FDA-Public Use
  Company Number: US-AMGEN-USASP2011041224

PATIENT
  Age: 69 Year
  Sex: Male
  Weight: 173 kg

DRUGS (11)
  1. NORCO [Concomitant]
     Dosage: 325 MG, UNK
  2. BUSPAR [Concomitant]
     Dosage: 5 MG, UNK
  3. LAXATIVE [Concomitant]
     Dosage: UNK
  4. HD [Concomitant]
     Dosage: UNK
  5. MAGNESIUM [Concomitant]
     Dosage: 30 MG, UNK
  6. SOTALOL HCL [Concomitant]
     Dosage: 80 MG, UNK
  7. PRAVASTATIN [Concomitant]
     Dosage: 10 MG, UNK
  8. MULTIVITAMIN                       /00097801/ [Concomitant]
     Dosage: UNK
  9. LASIX [Concomitant]
     Dosage: 20 MG, UNK
  10. ENBREL [Suspect]
     Indication: PRODUCT USED FOR UNKNOWN INDICATION
     Dosage: 50 MG, QWK
     Route: 058
  11. ASPIRIN [Concomitant]
     Dosage: 81 MG, UNK

REACTIONS (5)
  - OROPHARYNGEAL BLISTERING [None]
  - PRURITUS [None]
  - MUSCULAR WEAKNESS [None]
  - DYSPNOEA [None]
  - HYPOAESTHESIA [None]
